FAERS Safety Report 12732025 (Version 1)
Quarter: 2016Q3

REPORT INFORMATION
  Report Type: Spontaneous
  Country: US (occurrence: US)
  Receive Date: 20160909
  Receipt Date: 20160909
  Transmission Date: 20161109
  Serious: Yes (Other)
  Sender: FDA-Public Use
  Company Number: None

PATIENT
  Age: 24 Year
  Sex: Female
  Weight: 72 kg

DRUGS (3)
  1. DULOXETINE. [Suspect]
     Active Substance: DULOXETINE
     Indication: MAJOR DEPRESSION
     Route: 048
     Dates: start: 20160908, end: 20160908
  2. BIRTH CONTROL PATCH [Concomitant]
  3. VITAMIN D3 [Concomitant]
     Active Substance: CHOLECALCIFEROL

REACTIONS (21)
  - Dizziness [None]
  - Feeling abnormal [None]
  - Hyperhidrosis [None]
  - Lacrimation increased [None]
  - Feeling cold [None]
  - Vision blurred [None]
  - Pain [None]
  - Palpitations [None]
  - Panic attack [None]
  - Memory impairment [None]
  - Gait disturbance [None]
  - Pain in extremity [None]
  - Nausea [None]
  - Vertigo [None]
  - Lip swelling [None]
  - Muscle rigidity [None]
  - Tremor [None]
  - Dry mouth [None]
  - Discomfort [None]
  - Serotonin syndrome [None]
  - Chills [None]

NARRATIVE: CASE EVENT DATE: 20160908
